FAERS Safety Report 6361014-8 (Version None)
Quarter: 2009Q3

REPORT INFORMATION
  Report Type: 
  Country: None (occurrence: None)
  Receive Date: 20090915
  Receipt Date: 20090915
  Transmission Date: 20100115
  Serious: Yes (Other)
  Sender: FDA-Public Use
  Company Number: None

PATIENT
  Age: 63 Year
  Sex: Female
  Weight: 63.5036 kg

DRUGS (1)
  1. NITROFURANTOIN [Suspect]
     Indication: URINARY TRACT INFECTION
     Dosage: 100M  2 X A DAY PO
     Route: 048
     Dates: start: 20090904, end: 20090904

REACTIONS (5)
  - DIZZINESS [None]
  - DIZZINESS POSTURAL [None]
  - NAUSEA [None]
  - VERTIGO [None]
  - VOMITING [None]
